FAERS Safety Report 4512329-7 (Version None)
Quarter: 2004Q4

REPORT INFORMATION
  Report Type: 
  Country: None (occurrence: None)
  Receive Date: 20041129
  Receipt Date: 20041118
  Transmission Date: 20050328
  Serious: Yes (Life-Threatening)
  Sender: FDA-Public Use
  Company Number: GB-GLAXOSMITHKLINE-B0357654A

PATIENT
  Age: 38 Year
  Sex: Male

DRUGS (3)
  1. PAROXETINE HCL [Suspect]
     Indication: DEPRESSION
     Dosage: 30MG PER DAY
     Route: 048
     Dates: start: 20041023, end: 20041024
  2. VENLAFAXINE HCL [Concomitant]
     Indication: DEPRESSION
     Dosage: 37.5MG TWICE PER DAY
     Route: 048
     Dates: start: 20040818, end: 20040101
  3. DIAZEPAM [Concomitant]
     Indication: ANXIETY
     Dosage: 5MG TWICE PER DAY
     Route: 048
     Dates: start: 20040818, end: 20040901

REACTIONS (7)
  - DIARRHOEA [None]
  - DYSPNOEA [None]
  - FATIGUE [None]
  - NAUSEA [None]
  - OROPHARYNGEAL SWELLING [None]
  - RASH PRURITIC [None]
  - SALIVARY HYPERSECRETION [None]
